FAERS Safety Report 9293960 (Version 1)
Quarter: 2013Q1

REPORT INFORMATION
  Report Type: Spontaneous
  Country: US (occurrence: None)
  Receive Date: 20121214
  Receipt Date: 20121214
  Transmission Date: 20140127
  Serious: Yes (Hospitalization)
  Sender: FDA-Public Use
  Company Number: 1208USA000570

PATIENT
  Age: 67 Year
  Sex: Female

DRUGS (3)
  1. JANUVIA (SITAGLIPTIN PHOSPHATE) FILM-COATED TABLET, 100 MG [Suspect]
     Indication: TYPE 2 DIABETES MELLITUS
     Route: 048
     Dates: end: 2012
  2. PRINIVIL (LISINOPRIL) TABLET [Suspect]
     Route: 048
  3. ALLOPURINOL [Concomitant]

REACTIONS (2)
  - Renal failure [None]
  - Wrong technique in drug usage process [None]
